FAERS Safety Report 7866731-6 (Version None)
Quarter: 2011Q4

REPORT INFORMATION
  Report Type: 
  Country: None (occurrence: None)
  Receive Date: 20111028
  Receipt Date: 20110809
  Transmission Date: 20120403
  Serious: No
  Sender: FDA-Public Use
  Company Number: US-GLAXOSMITHKLINE-A0940222A

PATIENT
  Age: 82 Year
  Sex: Male

DRUGS (3)
  1. ADVAIR DISKUS 100/50 [Suspect]
     Indication: ASTHMA
     Dosage: 1PUFF EVERY 3 DAYS
     Route: 055
     Dates: start: 20110601
  2. ATROVENT [Concomitant]
  3. VENTOLIN [Concomitant]

REACTIONS (3)
  - FATIGUE [None]
  - CHEST DISCOMFORT [None]
  - URTICARIA [None]
